FAERS Safety Report 5386297-2 (Version None)
Quarter: 2007Q3

REPORT INFORMATION
  Report Type: 
  Country: None (occurrence: None)
  Receive Date: 20070710
  Receipt Date: 20070710
  Transmission Date: 20080115
  Serious: Yes (Other)
  Sender: FDA-Public Use
  Company Number: None

PATIENT
  Sex: Male
  Weight: 1.006 kg

DRUGS (11)
  1. NEOPROFEN [Suspect]
     Indication: PATENT DUCTUS ARTERIOSUS
     Dosage: SEE IMAGE
     Route: 042
     Dates: start: 20070702, end: 20070704
  2. CEFOTAXIME SODIUM [Concomitant]
  3. CLINDAMYCIN HCL [Concomitant]
  4. IV FAT EMULSIONK [Concomitant]
  5. FENTANYL [Concomitant]
  6. TOBRAMYCIN [Concomitant]
  7. VANCOMYCIN [Concomitant]
  8. TPN [Concomitant]
  9. DOPAMINE HCL [Concomitant]
  10. DOBUTAMINE HCL [Concomitant]
  11. EPINEPHRINE INFUSIONS [Concomitant]

REACTIONS (1)
  - HYPERBILIRUBINAEMIA [None]
